FAERS Safety Report 6672560-1 (Version None)
Quarter: 2010Q2

REPORT INFORMATION
  Report Type: 
  Country: None (occurrence: None)
  Receive Date: 20100407
  Receipt Date: 20100407
  Transmission Date: 20101027
  Serious: Yes (Hospitalization)
  Sender: FDA-Public Use
  Company Number: None

PATIENT
  Age: 55 Year
  Sex: Male
  Weight: 99.2 kg

DRUGS (2)
  1. JANUVIA [Suspect]
     Indication: TYPE 2 DIABETES MELLITUS
     Dosage: 50 MG Q DAY PO, STARTED PRIOR TO HOSPITALIZATION
     Route: 048
  2. MULTIPLE OTHER MEDS SEE H+P [Suspect]

REACTIONS (2)
  - CHEST PAIN [None]
  - PANCREATITIS ACUTE [None]
